FAERS Safety Report 5121626-6 (Version None)
Quarter: 2006Q4

REPORT INFORMATION
  Report Type: 
  Country: None (occurrence: None)
  Receive Date: 20061003
  Receipt Date: 20060920
  Transmission Date: 20070319
  Serious: No
  Sender: FDA-Public Use
  Company Number: A022129

PATIENT
  Age: 73 Year
  Sex: Male

DRUGS (18)
  1. DOXAZOSIN MESYLATE [Suspect]
     Indication: BENIGN PROSTATIC HYPERPLASIA
     Dosage: (DAILY); ORAL
     Route: 048
     Dates: start: 20000301, end: 20000601
  2. DOXAZOSIN MESYLATE [Suspect]
     Indication: PROSTATIC ADENOMA
     Dosage: (DAILY); ORAL
     Route: 048
     Dates: start: 20000301, end: 20000601
  3. TAHOR                   (ATORVASTATIN) [Suspect]
     Indication: HYPERLIPIDAEMIA
     Dosage: 10 MG (DAILY); ORAL
     Route: 048
  4. ANTIHYPERTENSIVES [Concomitant]
  5. DOMPERIDONE [Concomitant]
  6. ETIDRONIC ACID [Concomitant]
  7. CALCIUM CARBONATE / COLECALCIFEROL [Concomitant]
  8. FENOTEROL W/IPRATROPIUM            (FENOTEROL, IPRATROPIUM) [Concomitant]
  9. LANSOPRAZOLE [Concomitant]
  10. BROMAZEPAM [Concomitant]
  11. LACTITOL [Concomitant]
  12. METEOSPASMYL                   (ALVERINE CITRATE, DL-METHIONINE) [Concomitant]
  13. CLOPIDOGREL [Concomitant]
  14. MIANSERINE [Concomitant]
  15. FORMOTEROL [Concomitant]
  16. BUDESONIDE [Concomitant]
  17. PYGEUM AFRICANUM [Concomitant]
  18. COMBIVENT [Concomitant]

REACTIONS (12)
  - ANAEMIA [None]
  - ANOREXIA [None]
  - ARTERIAL DISORDER [None]
  - ARTERITIS [None]
  - ASTHENIA [None]
  - FALL [None]
  - HAEMOPTYSIS [None]
  - INCISION SITE ABSCESS [None]
  - INFLAMMATION [None]
  - ORTHOSTATIC HYPOTENSION [None]
  - POSTOPERATIVE ABSCESS [None]
  - PROSTATIC SPECIFIC ANTIGEN INCREASED [None]
